FAERS Safety Report 8573495-X (Version None)
Quarter: 2012Q3

REPORT INFORMATION
  Report Type: 
  Country: None (occurrence: None)
  Receive Date: 20120806
  Receipt Date: 20120731
  Transmission Date: 20120928
  Serious: Yes (Death)
  Sender: FDA-Public Use
  Company Number: US-ASTRAZENECA-2012SE54345

PATIENT
  Age: 90 Year
  Sex: Female

DRUGS (3)
  1. SYMBICORT [Suspect]
     Dosage: UNKNOWN
     Route: 055
  2. NEXIUM [Suspect]
     Route: 048
  3. ACCOLATE [Suspect]
     Route: 048

REACTIONS (1)
  - DEATH [None]
